FAERS Safety Report 23225643 (Version 2)
Quarter: 2023Q4

REPORT INFORMATION
  Report Type: Report from Study
  Country: MA (occurrence: MA)
  Receive Date: 20231124
  Receipt Date: 20231129
  Transmission Date: 20240110
  Serious: Yes (Death, Other)
  Sender: FDA-Public Use
  Company Number: MA-002147023-NVSC2023MA250220

PATIENT
  Sex: Female

DRUGS (2)
  1. TYKERB [Suspect]
     Active Substance: LAPATINIB DITOSYLATE
     Indication: Breast cancer metastatic
     Dosage: 5 DOSAGE FORM, QD (250 MG)
     Route: 048
  2. TYKERB [Suspect]
     Active Substance: LAPATINIB DITOSYLATE
     Dosage: 7 DOSAGE FORM, QD (7 TABLETS PER DAY)
     Route: 065
     Dates: start: 202206, end: 202302

REACTIONS (7)
  - Breast cancer metastatic [Fatal]
  - Malignant neoplasm progression [Fatal]
  - Metastases to central nervous system [Fatal]
  - Brain oedema [Fatal]
  - General physical health deterioration [Fatal]
  - Headache [Fatal]
  - Blindness [Fatal]
